FAERS Safety Report 6216592-6 (Version None)
Quarter: 2009Q2

REPORT INFORMATION
  Report Type: 
  Country: None (occurrence: None)
  Receive Date: 20090605
  Receipt Date: 20090602
  Transmission Date: 20091009
  Serious: No
  Sender: FDA-Public Use
  Company Number: US-B.I. PHARMACEUTICALS,INC./RIDGEFIELD-2008-BP-10547BP

PATIENT
  Sex: Male

DRUGS (5)
  1. FLOMAX [Suspect]
  2. ORAL DIABETES MEDICATION (UNSPECIFIED) [Concomitant]
     Indication: TYPE 2 DIABETES MELLITUS
  3. PROTONIX [Concomitant]
  4. HYDROCHLOROT [Concomitant]
  5. LISINOPRIL [Concomitant]

REACTIONS (1)
  - CATARACT OPERATION [None]
